FAERS Safety Report 6906489-8 (Version None)
Quarter: 2010Q3

REPORT INFORMATION
  Report Type: 
  Country: None (occurrence: None)
  Receive Date: 20100804
  Receipt Date: 20100723
  Transmission Date: 20110219
  Serious: Yes (Other)
  Sender: FDA-Public Use
  Company Number: CA-PFIZER INC-2010087514

PATIENT
  Age: 76 Year
  Sex: Male

DRUGS (6)
  1. VIAGRA [Suspect]
     Dosage: 100 MG, AS NEEDED
     Dates: start: 20050101, end: 20100101
  2. DIOVAN [Concomitant]
     Dosage: UNK
  3. HYDROCHLOROTHIAZIDE [Concomitant]
     Dosage: 12.5 MG, UNK
  4. CALCIUM [Concomitant]
     Dosage: UNK MG, UNK
  5. ASPIRIN [Concomitant]
     Dosage: 81 MG, 1X/DAY
  6. GLUCOSAMINE HYDROCHLORIDE/CHONDROITIN SULFATE [Concomitant]
     Dosage: UNK

REACTIONS (2)
  - BLINDNESS [None]
  - BLINDNESS UNILATERAL [None]
